FAERS Safety Report 5905714-X (Version None)
Quarter: 2008Q4

REPORT INFORMATION
  Report Type: 
  Country: None (occurrence: None)
  Receive Date: 20081002
  Receipt Date: 20080924
  Transmission Date: 20090506
  Serious: No
  Sender: FDA-Public Use
  Company Number: GB-ROCHE-582795

PATIENT
  Sex: Male
  Weight: 122 kg

DRUGS (5)
  1. ORLISTAT [Suspect]
     Indication: OBESITY
     Route: 048
     Dates: start: 20080403
  2. ASPIRIN [Concomitant]
     Route: 048
  3. SIMVASTATIN [Concomitant]
     Dosage: NOCTERNAL
     Route: 048
     Dates: start: 20050314
  4. METFORMIN HCL [Concomitant]
     Route: 048
     Dates: start: 20040426
  5. DOSULEPIN [Concomitant]
     Indication: DEPRESSION
     Dosage: NOCTERNAL
     Route: 048
     Dates: start: 20070917

REACTIONS (2)
  - OEDEMA PERIPHERAL [None]
  - PHLEBITIS [None]
